FAERS Safety Report 13069017 (Version 3)
Quarter: 2017Q1

REPORT INFORMATION
  Report Type: Other
  Country: NL (occurrence: NL)
  Receive Date: 20161228
  Receipt Date: 20170105
  Transmission Date: 20170428
  Serious: Yes (Other)
  Sender: FDA-Public Use
  Company Number: NL-ASTELLAS-2016US050780

PATIENT
  Age: 11 Year
  Sex: Female
  Weight: 56 kg

DRUGS (9)
  1. HYDROCORTISON                      /00028601/ [Suspect]
     Active Substance: HYDROCORTISONE
     Indication: ECZEMA
     Dosage: UNK, UNKNOWN FREQ.
     Route: 003
     Dates: start: 2000
  2. PREDNISOLON                        /00016201/ [Suspect]
     Active Substance: PREDNISOLONE
     Indication: ECZEMA
     Dosage: 30 IU/KG, ONCE DAILY 1 PIECE
     Route: 048
     Dates: start: 2000
  3. BETAMETHASON                       /00008503/ [Suspect]
     Active Substance: BETAMETHASONE VALERATE
     Indication: ECZEMA
     Dosage: UNK UNK, UNKNOWN FREQ. (1MG/G), THIN
     Route: 003
     Dates: start: 2000
  4. DAKTACORT [Suspect]
     Active Substance: HYDROCORTISONE\MICONAZOLE NITRATE
     Indication: ECZEMA
     Dosage: UNK, UNKNOWN FREQ., APPLY THINLY
     Route: 003
     Dates: start: 2000
  5. PROTOPIC [Suspect]
     Active Substance: TACROLIMUS
     Indication: ECZEMA
     Dosage: UNK UNK, UNKNOWN FREQ.
     Route: 003
     Dates: start: 2000
  6. EMOVATE                            /00485702/ [Suspect]
     Active Substance: CLOBETASONE BUTYRATE
     Indication: ECZEMA
     Dosage: UNK, UNKNOWN FREQ.(0.5 MG/G), THIN
     Route: 003
     Dates: start: 2000
  7. HYDROCORTISON                      /00028601/ [Suspect]
     Active Substance: HYDROCORTISONE
     Dosage: UNK, UNKNOWN FREQ.
     Route: 003
  8. TRIAMCINOLONACETONIDE [Suspect]
     Active Substance: TRIAMCINOLONE ACETONIDE
     Indication: ECZEMA
     Dosage: UNK UNK, UNKNOWN FREQ. (1MG/G), APPLY THINLY
     Route: 003
     Dates: start: 2000
  9. TOPICORTE [Suspect]
     Active Substance: DESOXIMETASONE
     Indication: ECZEMA
     Dosage: UNK, UNKNOWN FREQ. (2.5 MG/G), APPLY THINLY
     Route: 003
     Dates: start: 2000

REACTIONS (2)
  - Eczema [Not Recovered/Not Resolved]
  - Steroid withdrawal syndrome [Not Recovered/Not Resolved]

NARRATIVE: CASE EVENT DATE: 20000101
